FAERS Safety Report 8941863 (Version 2)
Quarter: 2013Q1

REPORT INFORMATION
  Report Type: Spontaneous
  Country: DK (occurrence: CA)
  Receive Date: 20121130
  Receipt Date: 20130225
  Transmission Date: 20140127
  Serious: Yes (Other)
  Sender: FDA-Public Use
  Company Number: CA-FRI-1000040690

PATIENT
  Age: 14 Year
  Sex: Female

DRUGS (2)
  1. CELEXA [Suspect]
     Indication: ANXIETY
     Dosage: DAILY DOSE NOT REPORTED
     Route: 048
  2. ROBITUSSIN DM [Suspect]
     Dosage: DAILY DOSE NOT REPORTED
     Route: 048

REACTIONS (7)
  - Aggression [Unknown]
  - Abnormal behaviour [Unknown]
  - Paranoia [Unknown]
  - Restlessness [Unknown]
  - Psychomotor hyperactivity [Unknown]
  - Drug interaction [Unknown]
  - Off label use [Unknown]
